FAERS Safety Report 19301253 (Version 1)
Quarter: 2021Q2

REPORT INFORMATION
  Report Type: Spontaneous
  Country: US (occurrence: US)
  Receive Date: 20210525
  Receipt Date: 20210525
  Transmission Date: 20210717
  Serious: No
  Sender: FDA-Public Use
  Company Number: None

PATIENT
  Age: 45 Year
  Sex: Female
  Weight: 83 kg

DRUGS (1)
  1. FERRLECIT [Suspect]
     Active Substance: SODIUM FERRIC GLUCONATE COMPLEX
     Dosage: ?          OTHER FREQUENCY:ONCE;?
     Route: 041
     Dates: start: 20210506, end: 20210506

REACTIONS (7)
  - Dizziness [None]
  - Erythema [None]
  - Heart rate increased [None]
  - Pruritus [None]
  - Infusion related reaction [None]
  - Nausea [None]
  - Respiratory rate increased [None]

NARRATIVE: CASE EVENT DATE: 20210506
